FAERS Safety Report 18061193 (Version 1)
Quarter: 2020Q3

REPORT INFORMATION
  Report Type: Spontaneous
  Country: TW (occurrence: TW)
  Receive Date: 20200723
  Receipt Date: 20200723
  Transmission Date: 20201103
  Serious: Yes (Death, Other)
  Sender: FDA-Public Use
  Company Number: TW-AMGEN-TWNSP2020114677

PATIENT
  Age: 65 Year
  Sex: Female

DRUGS (3)
  1. PACLITAXEL. [Concomitant]
     Active Substance: PACLITAXEL
     Indication: MALIGNANT PERITONEAL NEOPLASM
     Dosage: 80 MILLIGRAM/SQ. METER, QWK
  2. BEVACIZUMAB. [Suspect]
     Active Substance: BEVACIZUMAB
     Indication: MALIGNANT PERITONEAL NEOPLASM
     Dosage: 7.5 MILLIGRAM/KILOGRAM
     Route: 065
  3. CISPLATIN. [Concomitant]
     Active Substance: CISPLATIN
     Indication: PERITONEAL CARCINOMA METASTATIC
     Dosage: 20 MILLIGRAM/SQ. METER, 3 TIMES/WK

REACTIONS (10)
  - Malignant peritoneal neoplasm [Fatal]
  - Intestinal ischaemia [Unknown]
  - Intestinal perforation [Unknown]
  - Sepsis [Fatal]
  - Asthenia [Unknown]
  - Biliary ascites [Unknown]
  - Metastatic neoplasm [Unknown]
  - Malaise [Unknown]
  - Malnutrition [Fatal]
  - Off label use [Unknown]
